FAERS Safety Report 25138180 (Version 1)
Quarter: 2025Q1

REPORT INFORMATION
  Report Type: Other
  Country: US (occurrence: US)
  Receive Date: 20250330
  Receipt Date: 20250330
  Transmission Date: 20250409
  Serious: Yes (Life-Threatening, Hospitalization, Other)
  Sender: SPECTRA MEDICAL DEVICES, LLC
  Company Number: US-Spectra Medical Devices, LLC-2173884

PATIENT
  Age: 92 Year
  Sex: Male

DRUGS (1)
  1. LIDOCAINE HYDROCHLORIDE [Suspect]
     Active Substance: LIDOCAINE HYDROCHLORIDE
     Indication: Local anaesthesia

REACTIONS (4)
  - Cardiac arrest [Recovered/Resolved]
  - Local anaesthetic systemic toxicity [Recovered/Resolved]
  - Mental impairment [Recovered/Resolved]
  - Generalised tonic-clonic seizure [Recovered/Resolved]
